FAERS Safety Report 6925451-2 (Version None)
Quarter: 2010Q3

REPORT INFORMATION
  Report Type: 
  Country: None (occurrence: None)
  Receive Date: 20100816
  Receipt Date: 20100804
  Transmission Date: 20110219
  Serious: Yes (Hospitalization)
  Sender: FDA-Public Use
  Company Number: US-JNJFOC-20100803934

PATIENT
  Age: 53 Year
  Sex: Female

DRUGS (3)
  1. TYLENOL (CAPLET) [Suspect]
     Route: 048
  2. TYLENOL (CAPLET) [Suspect]
     Indication: ARTHRALGIA
     Route: 048
  3. TOPAMAX [Concomitant]
     Indication: MIGRAINE
     Route: 065

REACTIONS (2)
  - GASTROINTESTINAL INFECTION [None]
  - PRODUCT QUALITY ISSUE [None]
